FAERS Safety Report 8851370 (Version 1)
Quarter: 2012Q4

REPORT INFORMATION
  Report Type: 
  Country: US (occurrence: US)
  Receive Date: 20121022
  Receipt Date: 20121022
  Transmission Date: 20130627
  Serious: Yes (Hospitalization)
  Sender: FDA-Public Use
  Company Number: US-AMGEN-USASP2012064120

PATIENT
  Age: 62 Year
  Sex: Female
  Weight: 52.15 kg

DRUGS (1)
  1. ENBREL [Suspect]
     Indication: PSORIASIS
     Dosage: 50 mg, qwk
     Route: 058
     Dates: start: 2010, end: 201207

REACTIONS (4)
  - Rash macular [Recovering/Resolving]
  - Cellulitis [Recovering/Resolving]
  - Drug ineffective [Recovering/Resolving]
  - Lymphadenopathy [Recovering/Resolving]
